FAERS Safety Report 6910219-3 (Version None)
Quarter: 2010Q3

REPORT INFORMATION
  Report Type: 
  Country: None (occurrence: None)
  Receive Date: 20100806
  Receipt Date: 20100802
  Transmission Date: 20110219
  Serious: Yes (Other)
  Sender: FDA-Public Use
  Company Number: US-ASTRAZENECA-2007UW16470

PATIENT
  Age: 54 Year
  Sex: Female
  Weight: 84.4 kg

DRUGS (35)
  1. SEROQUEL [Suspect]
     Indication: BIPOLAR DISORDER
     Dosage: 25 MG, 200 MG TO 300 MG
     Route: 048
     Dates: start: 20000714, end: 20000804
  2. SEROQUEL [Suspect]
     Indication: TACHYPHRENIA
     Dosage: 25 MG, 200 MG TO 300 MG
     Route: 048
     Dates: start: 20000714, end: 20000804
  3. SEROQUEL [Suspect]
     Dosage: 125 MG TO 150 MG
     Route: 048
     Dates: start: 20001018, end: 20010516
  4. SEROQUEL [Suspect]
     Dosage: 125 MG TO 150 MG
     Route: 048
     Dates: start: 20001018, end: 20010516
  5. SEROQUEL [Suspect]
     Dosage: 150 MG
     Route: 048
     Dates: start: 20010213
  6. SEROQUEL [Suspect]
     Dosage: 150 MG
     Route: 048
     Dates: start: 20010213
  7. SEROQUEL [Suspect]
     Dosage: 125 MG
     Route: 048
     Dates: start: 20010518, end: 20010713
  8. SEROQUEL [Suspect]
     Dosage: 125 MG
     Route: 048
     Dates: start: 20010518, end: 20010713
  9. SEROQUEL [Suspect]
     Dosage: 25 MG TO 300 MG
     Route: 048
     Dates: start: 20041008, end: 20070822
  10. SEROQUEL [Suspect]
     Dosage: 25 MG TO 300 MG
     Route: 048
     Dates: start: 20041008, end: 20070822
  11. SEROQUEL [Suspect]
     Route: 048
     Dates: start: 20050701, end: 20060101
  12. SEROQUEL [Suspect]
     Route: 048
     Dates: start: 20050701, end: 20060101
  13. SEROQUEL [Suspect]
     Dosage: 50 MG TO 150 MG
     Route: 048
     Dates: start: 20051005, end: 20060926
  14. SEROQUEL [Suspect]
     Dosage: 50 MG TO 150 MG
     Route: 048
     Dates: start: 20051005, end: 20060926
  15. SEROQUEL [Suspect]
     Dosage: 150 MG
     Route: 048
     Dates: start: 20060710, end: 20060721
  16. SEROQUEL [Suspect]
     Dosage: 150 MG
     Route: 048
     Dates: start: 20060710, end: 20060721
  17. SEROQUEL [Suspect]
     Route: 048
     Dates: end: 20070101
  18. SEROQUEL [Suspect]
     Route: 048
     Dates: end: 20070101
  19. ZYPREXA [Concomitant]
     Indication: BIPOLAR DISORDER
     Dates: start: 19990101, end: 19990101
  20. ABILIFY [Concomitant]
  21. LAMICTAL [Concomitant]
  22. LAMICTAL [Concomitant]
  23. NEURONTIN [Concomitant]
  24. NEURONTIN [Concomitant]
     Dosage: 300MG THREE TIMES A DAY AND 1500MG AT NIGHT
     Route: 048
     Dates: start: 20000625
  25. NEURONTIN [Concomitant]
  26. CELEXA [Concomitant]
     Dosage: 40MG EVERY MORNING AND 20MG AT NOON
     Route: 048
     Dates: start: 20000625
  27. WELLBUTRIN [Concomitant]
     Dates: start: 20000625
  28. TRILAFON [Concomitant]
     Dates: start: 20000625
  29. EFFEXOR [Concomitant]
     Route: 048
     Dates: start: 20000714
  30. INDERAL [Concomitant]
  31. NORVASC [Concomitant]
     Route: 048
     Dates: start: 20000714
  32. CELEBREX [Concomitant]
     Dates: start: 20000504
  33. COZAAR [Concomitant]
     Route: 048
     Dates: start: 20031205
  34. LEVOXYL [Concomitant]
     Dosage: 125MCG-0.125MG, EVERY MORNING
     Route: 048
     Dates: start: 20040404
  35. ZESTRIL [Concomitant]
     Dates: start: 20000528

REACTIONS (7)
  - DIABETES MELLITUS [None]
  - DIABETIC NEUROPATHY [None]
  - HYPERGLYCAEMIA [None]
  - HYPERPROLACTINAEMIA [None]
  - NEUROPATHY PERIPHERAL [None]
  - POLYNEUROPATHY IDIOPATHIC PROGRESSIVE [None]
  - TYPE 2 DIABETES MELLITUS [None]
